FAERS Safety Report 7478727-7 (Version None)
Quarter: 2011Q2

REPORT INFORMATION
  Report Type: 
  Country: None (occurrence: None)
  Receive Date: 20110513
  Receipt Date: 20110510
  Transmission Date: 20111010
  Serious: Yes (Hospitalization, Other)
  Sender: FDA-Public Use
  Company Number: BR-ROCHE-717115

PATIENT
  Sex: Female
  Weight: 60 kg

DRUGS (15)
  1. ACTEMRA [Suspect]
     Route: 042
     Dates: start: 20100712
  2. ACTEMRA [Suspect]
     Route: 042
     Dates: start: 20100912
  3. ACTEMRA [Suspect]
     Route: 042
     Dates: start: 20100110
  4. ACTEMRA [Suspect]
     Route: 042
     Dates: start: 20100812
  5. OMEPRAZOLE [Concomitant]
  6. CARBAMAZEPINE [Concomitant]
     Indication: DEPRESSION
     Dosage: AT NIGHT
  7. TRAMADOL HCL [Concomitant]
  8. ACTEMRA [Suspect]
     Indication: RHEUMATOID ARTHRITIS
     Dosage: ROUTE: ENDOVENOUS; FORM: INFUSION
     Route: 042
     Dates: start: 20100513
  9. ACTEMRA [Suspect]
     Route: 042
     Dates: start: 20101012
  10. ACTEMRA [Suspect]
     Route: 042
     Dates: start: 20101101
  11. ACTEMRA [Suspect]
     Route: 042
     Dates: start: 20101209
  12. METHOTREXATE [Concomitant]
  13. INSULIN [Concomitant]
     Dosage: 26 U/DAY
  14. METFORMIN HCL [Concomitant]
  15. LEVOTHYROXINE SODIUM [Concomitant]

REACTIONS (8)
  - LOWER LIMB FRACTURE [None]
  - ARTHRALGIA [None]
  - JOINT SWELLING [None]
  - BACTERIAL INFECTION [None]
  - THERAPEUTIC RESPONSE DECREASED [None]
  - PETECHIAE [None]
  - NERVOUSNESS [None]
  - DEPRESSION [None]
